FAERS Safety Report 22366490 (Version 1)
Quarter: 2023Q2

REPORT INFORMATION
  Report Type: Report from Study
  Country: US (occurrence: US)
  Receive Date: 20230525
  Receipt Date: 20230525
  Transmission Date: 20230721
  Serious: Yes (Other)
  Sender: FDA-Public Use
  Company Number: US-ABBVIE-5179292

PATIENT
  Sex: Male

DRUGS (2)
  1. SKYRIZI [Suspect]
     Active Substance: RISANKIZUMAB-RZAA
     Indication: Psoriatic arthropathy
     Dosage: 1 IN ONCE, WEEK 0
     Route: 058
     Dates: start: 20230411, end: 20230411
  2. SKYRIZI [Suspect]
     Active Substance: RISANKIZUMAB-RZAA
     Dosage: 1 IN ONCE, WEEK 4
     Route: 058
     Dates: start: 20230509, end: 20230509

REACTIONS (1)
  - Hernia repair [Unknown]
